FAERS Safety Report 16240127 (Version 2)
Quarter: 2019Q2

REPORT INFORMATION
  Report Type: Spontaneous
  Country: US (occurrence: US)
  Receive Date: 20190425
  Receipt Date: 20190617
  Transmission Date: 20190711
  Serious: Yes (Other)
  Sender: FDA-Public Use
  Company Number: US-PFIZER INC-2019167414

PATIENT
  Age: 94 Year
  Sex: Male

DRUGS (2)
  1. ADVIL PM [Suspect]
     Active Substance: DIPHENHYDRAMINE CITRATE\IBUPROFEN
     Dosage: 1 DF, 1X/DAY (AT BEDTIME)
     Dates: start: 2019
  2. ADVIL PM [Suspect]
     Active Substance: DIPHENHYDRAMINE CITRATE\IBUPROFEN
     Indication: SLEEP DISORDER
     Dosage: 2 DF, 1X/DAY (AT BEDTIME)
     Route: 048

REACTIONS (3)
  - Insomnia [Recovered/Resolved]
  - Malaise [Unknown]
  - Feeling abnormal [Unknown]
